FAERS Safety Report 13541551 (Version 1)
Quarter: 2017Q2

REPORT INFORMATION
  Report Type: Spontaneous
  Country: CN (occurrence: CN)
  Receive Date: 20170512
  Receipt Date: 20170512
  Transmission Date: 20170830
  Serious: Yes (Hospitalization)
  Sender: FDA-Public Use
  Company Number: CN-BAYER-2017-084510

PATIENT

DRUGS (3)
  1. NEXAVAR [Suspect]
     Active Substance: SORAFENIB
     Dosage: UNK
     Dates: start: 201508, end: 201604
  2. NEXAVAR [Suspect]
     Active Substance: SORAFENIB
     Dosage: UNK
     Dates: start: 201702
  3. NEXAVAR [Suspect]
     Active Substance: SORAFENIB
     Dosage: UNK
     Dates: end: 201610

REACTIONS (3)
  - Lower limb fracture [None]
  - Adverse reaction [None]
  - Rib fracture [None]

NARRATIVE: CASE EVENT DATE: 201604
